FAERS Safety Report 5679555-5 (Version None)
Quarter: 2008Q1

REPORT INFORMATION
  Report Type: 
  Country: None (occurrence: None)
  Receive Date: 20080325
  Receipt Date: 20080313
  Transmission Date: 20080703
  Serious: Yes (Other)
  Sender: FDA-Public Use
  Company Number: GB-PFIZER INC-2008023969

PATIENT
  Age: 26 Year
  Sex: Male

DRUGS (6)
  1. SILDENAFIL (PAH) [Suspect]
     Indication: PORTOPULMONARY HYPERTENSION
  2. BOSENTAN [Suspect]
     Indication: PORTOPULMONARY HYPERTENSION
  3. ILOPROST [Suspect]
     Indication: PORTOPULMONARY HYPERTENSION
  4. TACROLIMUS [Concomitant]
     Indication: IMMUNOSUPPRESSION
  5. ALL OTHER THERAPEUTIC PRODUCTS [Concomitant]
     Indication: IMMUNOSUPPRESSION
  6. GANCICLOVIR [Concomitant]
     Indication: PROPHYLAXIS

REACTIONS (3)
  - LIVER TRANSPLANT [None]
  - RENAL IMPAIRMENT [None]
  - SEPSIS [None]
